FAERS Safety Report 23255784 (Version 4)
Quarter: 2024Q1

REPORT INFORMATION
  Report Type: Report from Study
  Country: AE (occurrence: AE)
  Receive Date: 20231204
  Receipt Date: 20240130
  Transmission Date: 20240409
  Serious: Yes (Hospitalization, Disabling, Other)
  Sender: FDA-Public Use
  Company Number: AE-SERVIER-S23013474

PATIENT
  Sex: Male

DRUGS (1)
  1. IVABRADINE [Suspect]
     Active Substance: IVABRADINE
     Indication: Cardiac failure
     Dosage: UNK
     Route: 065
     Dates: start: 20211020

REACTIONS (2)
  - Gangrene [Unknown]
  - Leg amputation [Unknown]
